FAERS Safety Report 16303043 (Version 1)
Quarter: 2019Q2

REPORT INFORMATION
  Report Type: Spontaneous
  Country: US (occurrence: US)
  Receive Date: 20190513
  Receipt Date: 20190513
  Transmission Date: 20190711
  Serious: No
  Sender: FDA-Public Use
  Company Number: US-GLENMARK PHARMACEUTICALS-2019GMK039505

PATIENT

DRUGS (8)
  1. CLOBESTASOL PROPIONATE TOPICAL SOLUTION USP 0.0 [Suspect]
     Active Substance: CLOBETASOL PROPIONATE
     Indication: PRURITUS
     Dosage: UNK, BID
     Route: 061
     Dates: start: 201704
  2. BENADRYL [Concomitant]
     Active Substance: DIPHENHYDRAMINE HYDROCHLORIDE
     Indication: PRURITUS
     Dosage: UNK, PRN (AS NEEDED)
     Route: 065
  3. HYDROXYZINE [Concomitant]
     Active Substance: HYDROXYZINE HYDROCHLORIDE
     Indication: PRURITUS
     Dosage: UNK, PRN (EVERY 8 HRS OR AS NEEDED)
     Route: 065
  4. NEXIUM [Concomitant]
     Active Substance: ESOMEPRAZOLE MAGNESIUM
     Indication: OESOPHAGEAL IRRITATION
     Dosage: UNK, BID
     Route: 065
  5. NEXIUM [Concomitant]
     Active Substance: ESOMEPRAZOLE MAGNESIUM
     Indication: EPIGASTRIC DISCOMFORT
  6. CLOBESTASOL PROPIONATE TOPICAL SOLUTION USP 0.0 [Suspect]
     Active Substance: CLOBETASOL PROPIONATE
     Indication: CUTANEOUS T-CELL LYMPHOMA
  7. DEXTROAMPHETAMINE                  /00016601/ [Concomitant]
     Active Substance: DEXTROAMPHETAMINE
     Indication: NARCOLEPSY
     Dosage: UNK; EXTENDED RELEASE (ER)
     Route: 065
  8. PLAQUENIL                          /00072602/ [Concomitant]
     Active Substance: HYDROXYCHLOROQUINE DIPHOSPHATE
     Indication: OSTEOARTHRITIS
     Dosage: 1 DF, BID (TOTAL 400 MG)
     Route: 048

REACTIONS (4)
  - Drug ineffective for unapproved indication [Unknown]
  - Intentional product misuse [Unknown]
  - Skin discolouration [Recovering/Resolving]
  - Skin hyperpigmentation [Recovering/Resolving]

NARRATIVE: CASE EVENT DATE: 201704
